FAERS Safety Report 7799597-3 (Version None)
Quarter: 2011Q4

REPORT INFORMATION
  Report Type: 
  Country: None (occurrence: None)
  Receive Date: 20111006
  Receipt Date: 20110927
  Transmission Date: 20120403
  Serious: Yes (Hospitalization)
  Sender: FDA-Public Use
  Company Number: FR-BAXTER-2010BH009352

PATIENT
  Age: 59 Year
  Sex: Female
  Weight: 40 kg

DRUGS (25)
  1. FEIBA [Suspect]
     Route: 042
     Dates: start: 20091017, end: 20091017
  2. FEIBA [Suspect]
     Route: 042
     Dates: start: 20091018, end: 20091018
  3. FEIBA [Suspect]
     Route: 042
     Dates: start: 20091018, end: 20091018
  4. FEIBA [Suspect]
     Indication: FACTOR VIII INHIBITION
     Route: 042
     Dates: start: 20091016, end: 20091019
  5. FEIBA [Suspect]
     Route: 042
     Dates: start: 20091018, end: 20091018
  6. FEIBA [Suspect]
     Route: 042
     Dates: start: 20091019, end: 20091019
  7. DIAMICRON [Concomitant]
     Indication: PRODUCT USED FOR UNKNOWN INDICATION
     Route: 065
     Dates: start: 20091117
  8. AMOXICILLIN [Concomitant]
     Indication: TOOTH ABSCESS
     Route: 065
     Dates: start: 20100225, end: 20100304
  9. FEIBA [Suspect]
     Indication: ACQUIRED HAEMOPHILIA
     Route: 042
     Dates: start: 20091016, end: 20091019
  10. FEIBA [Suspect]
     Route: 042
     Dates: start: 20091017, end: 20091017
  11. FEIBA [Suspect]
     Route: 042
     Dates: start: 20091018, end: 20091018
  12. ESOMEPRAZOLE SODIUM [Concomitant]
     Indication: PRODUCT USED FOR UNKNOWN INDICATION
     Route: 065
     Dates: start: 20091015
  13. STEROGYL [Concomitant]
     Indication: PRODUCT USED FOR UNKNOWN INDICATION
     Route: 065
     Dates: start: 20091015, end: 20100303
  14. FEIBA [Suspect]
     Route: 042
     Dates: start: 20091016, end: 20091016
  15. FEIBA [Suspect]
     Route: 042
     Dates: start: 20091017, end: 20091017
  16. FEIBA [Suspect]
     Route: 042
     Dates: start: 20091019, end: 20091019
  17. KOREC [Concomitant]
     Indication: HYPERTENSION
     Route: 065
  18. OMEPRAZOLE [Concomitant]
     Indication: PRODUCT USED FOR UNKNOWN INDICATION
     Route: 065
     Dates: start: 20091214, end: 20100222
  19. ACETAMINOPHEN [Concomitant]
     Indication: TOOTH ABSCESS
     Route: 065
     Dates: start: 20100222, end: 20100222
  20. FEIBA [Suspect]
     Route: 042
     Dates: start: 20091018, end: 20091018
  21. FEIBA [Suspect]
     Route: 042
     Dates: start: 20091016, end: 20091016
  22. FEIBA [Suspect]
     Route: 042
     Dates: start: 20091018, end: 20091018
  23. FEIBA [Suspect]
     Route: 042
     Dates: start: 20091017, end: 20091017
  24. FEIBA [Suspect]
     Route: 042
     Dates: start: 20091019, end: 20091019
  25. FEIBA [Suspect]
     Route: 042
     Dates: start: 20091019, end: 20091019

REACTIONS (1)
  - OEDEMA PERIPHERAL [None]
